FAERS Safety Report 6970845-2 (Version None)
Quarter: 2010Q3

REPORT INFORMATION
  Report Type: 
  Country: None (occurrence: None)
  Receive Date: 20100908
  Receipt Date: 20100831
  Transmission Date: 20110219
  Serious: Yes (Hospitalization, Congenital Anomaly)
  Sender: FDA-Public Use
  Company Number: A0879917A

PATIENT
  Sex: Male

DRUGS (3)
  1. PAXIL [Suspect]
     Indication: DEPRESSION
     Dates: start: 20020101, end: 20030101
  2. PROZAC [Concomitant]
     Indication: DEPRESSION
     Dates: start: 20030101
  3. ATENOLOL [Concomitant]

REACTIONS (6)
  - ARNOLD-CHIARI MALFORMATION [None]
  - DRUG EXPOSURE DURING PREGNANCY [None]
  - HEART DISEASE CONGENITAL [None]
  - MENINGITIS [None]
  - PNEUMONIA [None]
  - WOLFF-PARKINSON-WHITE SYNDROME [None]
